FAERS Safety Report 6179487-2 (Version None)
Quarter: 2009Q2

REPORT INFORMATION
  Report Type: 
  Country: None (occurrence: None)
  Receive Date: 20090505
  Receipt Date: 20090420
  Transmission Date: 20091009
  Serious: Yes (Hospitalization)
  Sender: FDA-Public Use
  Company Number: US-ROCHE-628685

PATIENT
  Age: 73 Year
  Sex: Male
  Weight: 130 kg

DRUGS (16)
  1. MYCOPHENOLATE MOFETIL [Suspect]
     Indication: DRUG USE FOR UNKNOWN INDICATION
     Route: 065
  2. HEPARIN SODIUM [Suspect]
     Indication: HYPERCOAGULATION
     Route: 065
  3. ALLOPURINOL [Suspect]
     Indication: DRUG USE FOR UNKNOWN INDICATION
     Route: 065
  4. CARVEDILOL [Suspect]
     Indication: DRUG USE FOR UNKNOWN INDICATION
     Route: 065
  5. CARBONATE CALCIUM [Concomitant]
  6. ALENDRONATE SODIUM [Concomitant]
     Dosage: DRUG NAME WAS REPORTED AS ALENDRONATE.
     Route: 065
  7. ASPIRIN [Concomitant]
     Route: 065
  8. FERROUS SULFATE TAB [Concomitant]
     Route: 065
  9. FISH OIL [Concomitant]
     Route: 065
  10. FUROSEMIDE [Concomitant]
     Route: 065
  11. GLIPIZIDE [Concomitant]
     Route: 065
  12. MULTIVITAMIN NOS [Concomitant]
     Route: 065
  13. PANTOPRAZOLE SODIUM [Concomitant]
     Route: 065
  14. PREDNISONE [Concomitant]
     Route: 065
  15. TACROLIMUS [Concomitant]
     Route: 065
  16. TAMSULOSIN HCL [Concomitant]
     Route: 065

REACTIONS (13)
  - BLOOD CREATININE INCREASED [None]
  - DEEP VEIN THROMBOSIS [None]
  - DIARRHOEA [None]
  - DIZZINESS [None]
  - HEPARIN-INDUCED THROMBOCYTOPENIA [None]
  - HYPERHIDROSIS [None]
  - METABOLIC ACIDOSIS [None]
  - NAUSEA [None]
  - OEDEMA PERIPHERAL [None]
  - OLIGURIA [None]
  - RENAL IMPAIRMENT [None]
  - VASCULAR GRAFT OCCLUSION [None]
  - VOMITING [None]
